FAERS Safety Report 6666301-1 (Version None)
Quarter: 2010Q2

REPORT INFORMATION
  Report Type: 
  Country: None (occurrence: None)
  Receive Date: 20100402
  Receipt Date: 20100323
  Transmission Date: 20101027
  Serious: Yes (Hospitalization)
  Sender: FDA-Public Use
  Company Number: GXBR2010US00687

PATIENT
  Sex: Male
  Weight: 90.703 kg

DRUGS (4)
  1. TACROLIMUS (NGX) [Suspect]
     Indication: HEART TRANSPLANT
     Dosage: 1 MG, UNK
     Route: 048
     Dates: start: 20091001
  2. MYCOPHENOLATE MOFETIL (NGX) [Suspect]
     Dosage: UNK
     Dates: end: 20100301
  3. PROGRAF [Suspect]
     Indication: HEART TRANSPLANT
     Dosage: 1 MG, UNK
     Route: 048
     Dates: end: 20091001
  4. REQUIP [Concomitant]
     Indication: RESTLESS LEGS SYNDROME
     Dosage: UNK
     Dates: start: 20091001

REACTIONS (8)
  - DIARRHOEA [None]
  - GASTROINTESTINAL PAIN [None]
  - HYPERHIDROSIS [None]
  - ILEUS [None]
  - INTESTINAL OBSTRUCTION [None]
  - LYMPHOMA [None]
  - MALAISE [None]
  - VOMITING [None]
